FAERS Safety Report 16541197 (Version 1)
Quarter: 2019Q3

REPORT INFORMATION
  Report Type: Spontaneous
  Country: RO (occurrence: RO)
  Receive Date: 20190708
  Receipt Date: 20190708
  Transmission Date: 20191004
  Serious: Yes (Life-Threatening)
  Sender: FDA-Public Use
  Company Number: RO-ASTRAZENECA-2019SE97467

PATIENT
  Age: 63 Year
  Sex: Male

DRUGS (4)
  1. ASA [Concomitant]
     Active Substance: ASPIRIN
  2. BRILIQUE [Suspect]
     Active Substance: TICAGRELOR
     Indication: ACUTE MYOCARDIAL INFARCTION
     Route: 048
  3. STATIN [Concomitant]
     Active Substance: UNSPECIFIED INGREDIENT
  4. BRILIQUE [Suspect]
     Active Substance: TICAGRELOR
     Indication: CORONARY ARTERIAL STENT INSERTION
     Route: 048

REACTIONS (1)
  - Acute myocardial infarction [Unknown]

NARRATIVE: CASE EVENT DATE: 201805
